FAERS Safety Report 10747997 (Version 1)
Quarter: 2015Q1

REPORT INFORMATION
  Report Type: Spontaneous
  Country: US (occurrence: US)
  Receive Date: 20150129
  Receipt Date: 20150129
  Transmission Date: 20150721
  Serious: No
  Sender: FDA-Public Use
  Company Number: US-ASTRAZENECA-2015SE06096

PATIENT
  Sex: Female

DRUGS (3)
  1. NATURAL PROGESTERONE CREAM [Concomitant]
     Route: 061
  2. SEROQUEL [Suspect]
     Active Substance: QUETIAPINE FUMARATE
     Indication: SLEEP DISORDER
     Route: 048
  3. MULTIVITAMIN [Concomitant]
     Active Substance: VITAMINS
     Route: 065

REACTIONS (4)
  - Menopause [Unknown]
  - Somnolence [Unknown]
  - Hyperhidrosis [Unknown]
  - Intentional product misuse [Unknown]
